FAERS Safety Report 9788672 (Version 3)
Quarter: 2014Q3

REPORT INFORMATION
  Report Type: Spontaneous
  Country: DE (occurrence: DE)
  Receive Date: 20131230
  Receipt Date: 20140714
  Transmission Date: 20150326
  Serious: Yes (Hospitalization)
  Sender: FDA-Public Use
  Company Number: DE-JNJFOC-20131216441

PATIENT
  Age: 46 Year
  Sex: Male
  Weight: 74 kg

DRUGS (3)
  1. BELOC ZOK [Concomitant]
     Active Substance: METOPROLOL SUCCINATE
     Indication: HYPERTENSION
     Dosage: THE PATIENT WAS TREATED WITH 95(IN THE MORNING.
     Route: 065
     Dates: start: 20100615
  2. MOVICOL [Concomitant]
     Active Substance: POLYETHYLENE GLYCOL 3350\POTASSIUM CHLORIDE\SODIUM BICARBONATE\SODIUM CHLORIDE
     Indication: CONSTIPATION
     Dosage: THE PATIENT WAS TREATED WITH 1 (IN THE MORNING)
     Route: 065
     Dates: start: 20111104, end: 201403
  3. RISPERDAL CONSTA [Suspect]
     Active Substance: RISPERIDONE
     Indication: SCHIZOPHRENIA, PARANOID TYPE
     Route: 030
     Dates: start: 20080620, end: 20140103

REACTIONS (4)
  - Visual acuity reduced [Not Recovered/Not Resolved]
  - Cerebral artery occlusion [Unknown]
  - Infarction [Not Recovered/Not Resolved]
  - Visual field defect [Not Recovered/Not Resolved]

NARRATIVE: CASE EVENT DATE: 20131221
